FAERS Safety Report 21182371 (Version 3)
Quarter: 2022Q3

REPORT INFORMATION
  Report Type: Report from Study
  Country: AU (occurrence: AU)
  Receive Date: 20220807
  Receipt Date: 20220922
  Transmission Date: 20221026
  Serious: Yes (Hospitalization)
  Sender: FDA-Public Use
  Company Number: AU-BRISTOL-MYERS SQUIBB COMPANY-2022-081049

PATIENT
  Age: 80 Year
  Sex: Female

DRUGS (26)
  1. LENALIDOMIDE [Suspect]
     Active Substance: LENALIDOMIDE
     Indication: Plasma cell myeloma
     Route: 065
     Dates: start: 20220303, end: 20220715
  2. DEXAMETHASONE [Suspect]
     Active Substance: DEXAMETHASONE
     Indication: Plasma cell myeloma
     Route: 065
     Dates: start: 20220303, end: 20220715
  3. ISATUXIMAB [Suspect]
     Active Substance: ISATUXIMAB
     Indication: Plasma cell myeloma
     Route: 065
     Dates: start: 20220704, end: 20220711
  4. METOPROLOL TARTRATE [Concomitant]
     Active Substance: METOPROLOL TARTRATE
     Indication: Product used for unknown indication
     Dosage: METOPROLOL TARTRATE (MINAX) ?50 MG TABLETS
  5. POTASSIUM CHLORIDE [Concomitant]
     Active Substance: POTASSIUM CHLORIDE
     Indication: Product used for unknown indication
     Dosage: POTASSIUM CHLORIDE (SPAN-K (NEW FORMULATION)) 600 MG MODIFIED RELEASE TABLETS
  6. CHOLECALCIFEROL [Concomitant]
     Active Substance: CHOLECALCIFEROL
     Indication: Product used for unknown indication
     Dosage: COLECALCIFEROL (OSTELIN VITAMIN D) 25 MCG CAPSULES
  7. FAMOTIDINE [Concomitant]
     Active Substance: FAMOTIDINE
     Indication: Product used for unknown indication
     Dosage: FAMOTIDINE (FAMOTIDINE AN) ?40 MG TABLETS
  8. APO-METFORMIN XR [Concomitant]
     Indication: Product used for unknown indication
     Dosage: METFORMIN HYDROCHLORIDE ?(APO-METFORMIN XR) 1000 MG MODIFIED RELEASE TABLETS
  9. FUROSEMIDE [Concomitant]
     Active Substance: FUROSEMIDE
     Indication: Product used for unknown indication
     Dosage: FUROSEMIDE (FRUSEMIDE) ?(APO-FRUSEMIDE) 20 MG ?TABLETS
  10. ATORVASTATIN [Concomitant]
     Active Substance: ATORVASTATIN
     Indication: Product used for unknown indication
     Dosage: ATORVASTATIN (LIPITOR) 80 ?MG TABLETS
  11. VALACYCLOVIR HYDROCHLORIDE [Concomitant]
     Active Substance: VALACYCLOVIR HYDROCHLORIDE
     Indication: Product used for unknown indication
     Dosage: VALACICLOVIR (VALTREX) 500 ?MG TABLETS
  12. DEXAMETHASONE [Concomitant]
     Active Substance: DEXAMETHASONE
     Indication: Product used for unknown indication
     Dosage: DEXAMETHASONE ?(DEXMETHSONE) 4 MG ?TABLETS
  13. RIVAROXABAN [Concomitant]
     Active Substance: RIVAROXABAN
     Indication: Product used for unknown indication
     Dosage: RIVAROXABAN (XARELTO) 20 MG TABLETS
  14. MAGNESIUM ASPARTATE DIHYDRATE [Concomitant]
     Active Substance: MAGNESIUM ASPARTATE DIHYDRATE
     Indication: Product used for unknown indication
     Dosage: MAGNESIUM ASPARTATE DIHYDRATE (MAGMIN) 500 MG TABLETS
  15. ACETAMINOPHEN [Concomitant]
     Active Substance: ACETAMINOPHEN
     Indication: Product used for unknown indication
     Dosage: PARACETAMOL (PANADOL) 500 ?MG TABLETS
  16. POLYETHYLENE GLYCOL 3350\POTASSIUM CHLORIDE\SODIUM BICARBONATE\SODIUM [Concomitant]
     Active Substance: POLYETHYLENE GLYCOL 3350\POTASSIUM CHLORIDE\SODIUM BICARBONATE\SODIUM CHLORIDE
     Indication: Product used for unknown indication
     Dosage: MOVICOL READY TO TAKE - 13.125 G/ 50.2 MG / 178.6 MG / 350.8 MG ORAL SOLUTION
  17. OXYCODONE HYDROCHLORIDE [Concomitant]
     Active Substance: OXYCODONE HYDROCHLORIDE
     Indication: Product used for unknown indication
     Dosage: OXYCODONE HYDROCHLORIDE (ENDONE) 5 MG TABLETS
  18. PREDNISOLONE [Concomitant]
     Active Substance: PREDNISOLONE
     Indication: Product used for unknown indication
     Dosage: PREDNISOLONE (SOLONE) 5 MG TABLETS
  19. BUPRENORPHINE [Concomitant]
     Active Substance: BUPRENORPHINE
     Indication: Product used for unknown indication
     Dosage: BUPRENORPHINE (NORSPAN) 40 MCG TRANSDERMAL PATCH  S11 / S8
  20. DOCUSATE SODIUM\SENNOSIDE B [Concomitant]
     Active Substance: DOCUSATE SODIUM\SENNOSIDE B
     Indication: Product used for unknown indication
     Dosage: DOCUSATE SODIUM;SENNOSIDE B(COLOXYL WITH SENNA) 50 MG / 8MG TABLETS
  21. DULOXETINE [Concomitant]
     Active Substance: DULOXETINE
     Indication: Product used for unknown indication
     Dosage: DULOXETINE (TIXOI) 30 MG CAPSULES
  22. LORATADINE [Concomitant]
     Active Substance: LORATADINE
     Indication: Product used for unknown indication
     Dosage: LORATADINE (LORANO) 10 MG TABLETS
  23. PANTOPRAZOLE [Concomitant]
     Active Substance: PANTOPRAZOLE
     Indication: Product used for unknown indication
     Dosage: PANTOPRAZOLE (SOMAC TABLETS AND GRANULES) 40 MG TABLETS
  24. OXYCODONE HYDROCHLORIDE [Concomitant]
     Active Substance: OXYCODONE HYDROCHLORIDE
     Indication: Product used for unknown indication
     Dosage: OXYCODONE HYDROCHLORIDE (ENDONE) 5 MG TABLETS  (S 11/S 8)
  25. ALUMINUM HYDROXIDE\DIMETHICONE\MAGNESIUM HYDROXIDE [Concomitant]
     Active Substance: ALUMINUM HYDROXIDE\DIMETHICONE\MAGNESIUM HYDROXIDE
     Indication: Product used for unknown indication
     Dosage: ALUMINIUM HYDROXIDE/MAGNESIUM HYDROXIDE/SIMETHICONE (MYLANTA 2GO ANTACID DOUBLE STRENGTH) 400 MG / 4
  26. DEXAMETHASONE [Concomitant]
     Active Substance: DEXAMETHASONE
     Indication: Product used for unknown indication
     Dosage: DEXAMETHASONE (DEXMETHSONE) 4 MG TABLETS

REACTIONS (1)
  - Musculoskeletal chest pain [Recovered/Resolved]

NARRATIVE: CASE EVENT DATE: 20220724
